FAERS Safety Report 16335806 (Version 2)
Quarter: 2020Q4

REPORT INFORMATION
  Report Type: Spontaneous
  Country: US (occurrence: US)
  Receive Date: 20190521
  Receipt Date: 20201017
  Transmission Date: 20210113
  Serious: Yes (Other)
  Sender: FDA-Public Use
  Company Number: US-GILEAD-2019-0408027

PATIENT
  Age: 55 Year
  Sex: Male

DRUGS (24)
  1. FLEXERIL [CEFIXIME] [Concomitant]
     Active Substance: CEFIXIME
  2. MELOXICAM. [Concomitant]
     Active Substance: MELOXICAM
  3. CALCITRIOL. [Concomitant]
     Active Substance: CALCITRIOL
  4. AZITHROMYCIN ANHYDROUS. [Concomitant]
     Active Substance: AZITHROMYCIN ANHYDROUS
  5. OMEPRAZOLE. [Concomitant]
     Active Substance: OMEPRAZOLE
  6. TRUVADA [Suspect]
     Active Substance: EMTRICITABINE\TENOFOVIR DISOPROXIL FUMARATE
     Indication: HIV INFECTION
     Dosage: UNK
     Route: 048
     Dates: start: 2011, end: 20190826
  7. TARTRATE DE PENTOLONIUM [Concomitant]
     Active Substance: PENTOLINIUM TARTRATE
  8. EPZICOM [Concomitant]
     Active Substance: ABACAVIR SULFATE\LAMIVUDINE
  9. TIVICAY [Concomitant]
     Active Substance: DOLUTEGRAVIR SODIUM
  10. HCTZ [Concomitant]
     Active Substance: HYDROCHLOROTHIAZIDE
  11. HYDROCODONE [Concomitant]
     Active Substance: HYDROCODONE
  12. LISINOPRIL. [Concomitant]
     Active Substance: LISINOPRIL
  13. METOPROLOL. [Concomitant]
     Active Substance: METOPROLOL
  14. NORTRIPTYLINE [Concomitant]
     Active Substance: NORTRIPTYLINE
  15. ROPINIROLE. [Concomitant]
     Active Substance: ROPINIROLE
  16. NIFEDIPINE. [Concomitant]
     Active Substance: NIFEDIPINE
  17. PROMETHAZINE [Concomitant]
     Active Substance: PROMETHAZINE HYDROCHLORIDE
  18. VITAMIN D2 [Concomitant]
     Active Substance: ERGOCALCIFEROL
  19. ATRIPLA [Suspect]
     Active Substance: EFAVIRENZ\EMTRICITABINE\TENOFOVIR DISOPROXIL FUMARATE
     Indication: HIV INFECTION
     Dosage: UNK
     Route: 048
     Dates: start: 201211, end: 20130125
  20. EMTRIVA [Concomitant]
     Active Substance: EMTRICITABINE
  21. ISENTRESS [Concomitant]
     Active Substance: RALTEGRAVIR POTASSIUM
  22. SUSTIVA [Concomitant]
     Active Substance: EFAVIRENZ
  23. DIAZEPAM. [Concomitant]
     Active Substance: DIAZEPAM
  24. LOSARTAN POTASSIUM. [Concomitant]
     Active Substance: LOSARTAN POTASSIUM

REACTIONS (12)
  - Economic problem [Not Recovered/Not Resolved]
  - Chronic kidney disease [Unknown]
  - Blood creatinine increased [Unknown]
  - Bone density decreased [Not Recovered/Not Resolved]
  - Anxiety [Not Recovered/Not Resolved]
  - End stage renal disease [Unknown]
  - Emotional distress [Not Recovered/Not Resolved]
  - Fatigue [Not Recovered/Not Resolved]
  - Osteoporosis [Unknown]
  - Anhedonia [Not Recovered/Not Resolved]
  - Renal failure [Not Recovered/Not Resolved]
  - Pain [Not Recovered/Not Resolved]

NARRATIVE: CASE EVENT DATE: 2010
